FAERS Safety Report 13188895 (Version 1)
Quarter: 2017Q1

REPORT INFORMATION
  Report Type: Spontaneous
  Country: US (occurrence: US)
  Receive Date: 20170203
  Receipt Date: 20170203
  Transmission Date: 20170509
  Serious: No
  Sender: FDA-Public Use
  Company Number: None

PATIENT
  Age: 54 Year
  Sex: Male
  Weight: 127 kg

DRUGS (1)
  1. PENTAMIDINE ISETHIONATE [Suspect]
     Active Substance: PENTAMIDINE ISETHIONATE
     Indication: INFECTION
     Route: 055
     Dates: start: 20161017, end: 20161017

REACTIONS (3)
  - Dyspnoea [None]
  - Oxygen saturation decreased [None]
  - Bronchospasm [None]

NARRATIVE: CASE EVENT DATE: 20161017
